FAERS Safety Report 14233120 (Version 1)
Quarter: 2017Q4

REPORT INFORMATION
  Report Type: Report from Study
  Country: US (occurrence: US)
  Receive Date: 20171129
  Receipt Date: 20171129
  Transmission Date: 20180321
  Serious: Yes (Hospitalization, Other)
  Sender: FDA-Public Use
  Company Number: US-BAYER-2017-186957

PATIENT
  Age: 66 Year
  Sex: Male

DRUGS (3)
  1. STIVARGA [Suspect]
     Active Substance: REGORAFENIB
     Indication: COLORECTAL CANCER METASTATIC
     Dosage: DAILY DOSE 160 MG 3 WEEKS ON 1 WEEK OFF
     Route: 048
     Dates: start: 201710, end: 20171013
  2. STIVARGA [Suspect]
     Active Substance: REGORAFENIB
     Indication: COLORECTAL CANCER METASTATIC
     Dosage: DAILY DOSE 160 MG 3 WEEKS ON 1 WEEK OFF
     Route: 048
     Dates: start: 20170918, end: 20171011
  3. STIVARGA [Suspect]
     Active Substance: REGORAFENIB
     Indication: COLORECTAL CANCER METASTATIC
     Dosage: DAILY DOSE 80 MG 3 WEEKS ON 1 WEEK OFF
     Route: 048
     Dates: start: 20171016, end: 20171017

REACTIONS (10)
  - Dyspnoea [Recovering/Resolving]
  - Diarrhoea [Not Recovered/Not Resolved]
  - Fatigue [None]
  - Flatulence [None]
  - Asthenia [None]
  - Heart rate increased [Recovering/Resolving]
  - Blister [Recovered/Resolved]
  - Dysphonia [Not Recovered/Not Resolved]
  - Fatigue [Recovering/Resolving]
  - Skin burning sensation [Recovering/Resolving]

NARRATIVE: CASE EVENT DATE: 2017
